FAERS Safety Report 8377395-X (Version None)
Quarter: 2012Q2

REPORT INFORMATION
  Report Type: 
  Country: None (occurrence: None)
  Receive Date: 20120522
  Receipt Date: 20120509
  Transmission Date: 20120825
  Serious: Yes (Other)
  Sender: FDA-Public Use
  Company Number: US-JNJFOC-20120304327

PATIENT
  Sex: Female
  Weight: 53.52 kg

DRUGS (17)
  1. DURAGESIC-100 [Suspect]
     Indication: PAIN
     Route: 062
  2. DURAGESIC-100 [Suspect]
     Route: 062
     Dates: start: 19920101, end: 20090101
  3. METHADONE HCL [Suspect]
     Indication: PAIN
     Route: 048
     Dates: start: 19930101
  4. DURAGESIC-100 [Suspect]
     Route: 062
     Dates: start: 20090101, end: 20120301
  5. DURAGESIC-100 [Suspect]
     Route: 062
     Dates: start: 20120401, end: 20120401
  6. SOMA [Suspect]
     Indication: MUSCLE SPASMS
     Route: 048
     Dates: start: 19930101
  7. DURAGESIC-100 [Suspect]
     Route: 062
     Dates: start: 20120401, end: 20120401
  8. DURAGESIC-100 [Suspect]
     Route: 062
     Dates: start: 20120509
  9. FENTANYL CITRATE [Suspect]
     Indication: SURGERY
     Route: 062
  10. MORPHINE SULFATE [Suspect]
     Indication: PAIN
     Route: 048
     Dates: start: 20110101
  11. DURAGESIC-100 [Suspect]
     Route: 062
     Dates: start: 20120401, end: 20120401
  12. DURAGESIC-100 [Suspect]
     Route: 062
     Dates: start: 20090101, end: 20120301
  13. VICODIN [Suspect]
     Indication: PAIN
     Route: 048
     Dates: start: 19920101, end: 19930101
  14. DURAGESIC-100 [Suspect]
     Indication: SURGERY
     Route: 062
  15. DURAGESIC-100 [Suspect]
     Route: 062
     Dates: start: 19920101, end: 20090101
  16. DURAGESIC-100 [Suspect]
     Route: 062
     Dates: start: 20120509
  17. DURAGESIC-100 [Suspect]
     Route: 062
     Dates: start: 20120401, end: 20120401

REACTIONS (8)
  - MIGRAINE [None]
  - WRONG TECHNIQUE IN DRUG USAGE PROCESS [None]
  - SPINAL FUSION SURGERY [None]
  - DRUG INEFFECTIVE [None]
  - NEURALGIA [None]
  - PAIN [None]
  - MALAISE [None]
  - TREMOR [None]
